FAERS Safety Report 23381728 (Version 1)
Quarter: 2024Q1

REPORT INFORMATION
  Report Type: Spontaneous
  Country: IT (occurrence: IT)
  Receive Date: 20240109
  Receipt Date: 20240109
  Transmission Date: 20240410
  Serious: Yes (Hospitalization)
  Sender: FDA-Public Use
  Company Number: None

PATIENT
  Age: 30 Year
  Sex: Female

DRUGS (2)
  1. IMODIUM [Suspect]
     Active Substance: LOPERAMIDE HYDROCHLORIDE
     Indication: Product used for unknown indication
     Dosage: DOSAGE: 2UNIT OF MEASUREMENT: MILLIGRAMFREQUENCY OF ADMINISTRATION: TOTALMETHOD OF ADMINISTRATION: O
     Route: 048
     Dates: start: 20230410, end: 20230410
  2. DOMPERIDONE [Suspect]
     Active Substance: DOMPERIDONE
     Indication: Product used for unknown indication
     Dosage: ASSAY: 10MEASURING UNIT: MILLIGRAMMADMINISTRATION FREQUENCY: TOTALADMINISTRATION ROUTE: ORAL
     Route: 048
     Dates: start: 20230410, end: 20230410

REACTIONS (1)
  - Erythema [Recovered/Resolved]

NARRATIVE: CASE EVENT DATE: 20230411
